FAERS Safety Report 22015375 (Version 1)
Quarter: 2023Q1

REPORT INFORMATION
  Report Type: Spontaneous
  Country: US (occurrence: None)
  Receive Date: 20230216
  Receipt Date: 20230216
  Transmission Date: 20230418
  Serious: Yes (Hospitalization)
  Sender: FDA-Public Use
  Company Number: None

PATIENT
  Age: 70 Year
  Sex: Female

DRUGS (12)
  1. PROMACTA [Suspect]
     Active Substance: ELTROMBOPAG OLAMINE
     Indication: Immune thrombocytopenia
     Dosage: FREQUENCY : DAILY;?TAKE ONE TABLET EVERY DAY WITH OR WITHOUT A MEAL LOW IN CALCIUM, 2 HOURS BEFORE O
     Route: 048
     Dates: start: 20210603
  2. ASPIRIN [Concomitant]
     Active Substance: ASPIRIN
  3. BENADRYL [Concomitant]
     Active Substance: DIPHENHYDRAMINE HYDROCHLORIDE
  4. COREG [Concomitant]
     Active Substance: CARVEDILOL
  5. FOLIC ACID [Concomitant]
     Active Substance: FOLIC ACID
  6. HUMALOG [Concomitant]
     Active Substance: INSULIN LISPRO
  7. LISINOPRIL [Concomitant]
     Active Substance: LISINOPRIL
  8. MIDODRINE [Concomitant]
     Active Substance: MIDODRINE
  9. OXYBUTYNIN [Concomitant]
     Active Substance: OXYBUTYNIN
  10. PEPCID AC [Concomitant]
     Active Substance: FAMOTIDINE
  11. PRAVASTATIN [Concomitant]
     Active Substance: PRAVASTATIN
  12. PULMICORT SUS [Concomitant]

REACTIONS (2)
  - Obstruction [None]
  - Gait inability [None]

NARRATIVE: CASE EVENT DATE: 20230125
